FAERS Safety Report 5071990-1 (Version None)
Quarter: 2006Q3

REPORT INFORMATION
  Report Type: 
  Country: None (occurrence: None)
  Receive Date: 20060801
  Receipt Date: 20060726
  Transmission Date: 20061208
  Serious: Yes (Other)
  Sender: FDA-Public Use
  Company Number: 2006091696

PATIENT
  Sex: Male
  Weight: 74.8435 kg

DRUGS (1)
  1. TUCKS HC [Suspect]
     Dosage: 1 PAD DAILY (ALL DAY), TOPICAL
     Route: 061
     Dates: start: 19850101

REACTIONS (2)
  - LYMPHOMA [None]
  - WRONG TECHNIQUE IN DRUG USAGE PROCESS [None]
